FAERS Safety Report 20741791 (Version 1)
Quarter: 2022Q2

REPORT INFORMATION
  Report Type: Spontaneous
  Country: US (occurrence: US)
  Receive Date: 20220423
  Receipt Date: 20220423
  Transmission Date: 20220721
  Serious: Yes (Death, Other)
  Sender: FDA-Public Use
  Company Number: US-ALXN-A202204832

PATIENT
  Age: 18 Month
  Sex: Female

DRUGS (1)
  1. SOLIRIS [Suspect]
     Active Substance: ECULIZUMAB
     Indication: Atypical haemolytic uraemic syndrome
     Route: 065

REACTIONS (4)
  - Subdural haematoma [Fatal]
  - Cerebral haematoma [Fatal]
  - Atypical haemolytic uraemic syndrome [Fatal]
  - Renal failure [Fatal]
